FAERS Safety Report 8911020 (Version 1)
Quarter: 2012Q4

REPORT INFORMATION
  Report Type: 
  Country: US (occurrence: US)
  Receive Date: 20121116
  Receipt Date: 20121116
  Transmission Date: 20130627
  Serious: Yes (Other)
  Sender: FDA-Public Use
  Company Number: US-SANOFI-AVENTIS-2012SA082543

PATIENT
  Age: 45 Year
  Sex: Male

DRUGS (8)
  1. PAROXETINE [Suspect]
     Indication: MAJOR DEPRESSIVE DISORDER NOS
     Dosage: extended release
     Route: 065
  2. PAROXETINE [Interacting]
     Indication: MAJOR DEPRESSIVE DISORDER NOS
     Dosage: extended release
     Route: 065
  3. PAROXETINE [Interacting]
     Indication: MAJOR DEPRESSIVE DISORDER NOS
     Route: 065
  4. ZOLPIDEM TARTRATE [Interacting]
     Indication: INSOMNIA
     Dosage: patient took 2 dosage forms instead of 1dosage form of 10 mg daily
     Route: 065
  5. ZOLPIDEM TARTRATE [Interacting]
     Indication: INSOMNIA
     Route: 065
  6. LORAZEPAM [Concomitant]
     Indication: MAJOR DEPRESSIVE DISORDER NOS
     Dosage: 1 mg twice daily as needed
  7. QUETIAPINE [Concomitant]
     Indication: MAJOR DEPRESSIVE DISORDER NOS
  8. QUETIAPINE [Concomitant]
     Indication: MAJOR DEPRESSIVE DISORDER NOS

REACTIONS (8)
  - Homicide [Unknown]
  - Drug interaction [Unknown]
  - Inappropriate schedule of drug administration [Unknown]
  - Incoherent [Unknown]
  - Catatonia [Unknown]
  - Thinking abnormal [Unknown]
  - Amnesia [Unknown]
  - Confusional state [Unknown]
